FAERS Safety Report 4621156-1 (Version None)
Quarter: 2005Q1

REPORT INFORMATION
  Report Type: 
  Country: None (occurrence: None)
  Receive Date: 20050328
  Receipt Date: 20050317
  Transmission Date: 20050727
  Serious: Yes (Hospitalization)
  Sender: FDA-Public Use
  Company Number: 2005AP01481

PATIENT
  Age: 33 Year
  Sex: Male

DRUGS (25)
  1. IRESSA [Suspect]
     Indication: OROPHARYNGEAL CANCER STAGE UNSPECIFIED
     Dosage: 250 MG DAILY PO
     Route: 048
     Dates: start: 20050113, end: 20050226
  2. IRESSA [Suspect]
     Indication: OROPHARYNGEAL CANCER STAGE UNSPECIFIED
     Dosage: 250 MG DAILY PO
     Route: 048
     Dates: start: 20050310, end: 20050316
  3. IRESSA [Suspect]
     Indication: OROPHARYNGEAL CANCER STAGE UNSPECIFIED
     Dosage: 250 MG DAILY PO
     Route: 048
     Dates: start: 20050317
  4. CISPLATIN [Suspect]
     Indication: OROPHARYNGEAL CANCER STAGE UNSPECIFIED
     Dosage: 139 MG Q3WK IV
     Route: 042
     Dates: start: 20050127, end: 20050127
  5. CISPLATIN [Suspect]
     Indication: OROPHARYNGEAL CANCER STAGE UNSPECIFIED
     Dosage: 110.4 MG Q3WK IV
     Route: 042
     Dates: start: 20050217, end: 20050217
  6. RADOTHERAPY [Suspect]
     Indication: OROPHARYNGEAL CANCER STAGE UNSPECIFIED
     Dosage: 2 DF DAILY
     Dates: start: 20050127, end: 20050226
  7. RADIOTHERAPY [Suspect]
     Indication: OROPHARYNGEAL CANCER STAGE UNSPECIFIED
     Dosage: 2 DF DAILY
     Dates: start: 20050228, end: 20050304
  8. RADIOTHERAPY [Suspect]
     Indication: OROPHARYNGEAL CANCER STAGE UNSPECIFIED
     Dosage: 2 DF DAILY
     Dates: start: 20050311, end: 20050316
  9. EMESET [Concomitant]
  10. MANNITOL [Concomitant]
  11. POTASSIUM CHLORIDE [Concomitant]
  12. SODIUM BICARBONATE [Concomitant]
  13. MOX [Concomitant]
  14. BOLEX FORTE [Concomitant]
  15. NUTRALIPID [Concomitant]
  16. T DICLOMOL [Concomitant]
  17. CALCIUM GLUCONATE [Concomitant]
  18. MORPHINE [Concomitant]
  19. DULCOLAX [Concomitant]
  20. PERINORM [Concomitant]
  21. POTKLOR [Concomitant]
  22. CIPLOX [Concomitant]
  23. ZYLORIC    FAES [Concomitant]
  24. PANTOP [Concomitant]
  25. RANTAC [Concomitant]

REACTIONS (18)
  - BLOOD CREATININE INCREASED [None]
  - BLOOD UREA INCREASED [None]
  - DIARRHOEA [None]
  - DYSPHAGIA [None]
  - EPIGASTRIC DISCOMFORT [None]
  - FAECAL INCONTINENCE [None]
  - FATIGUE [None]
  - FOLLICULITIS [None]
  - GASTRITIS [None]
  - LOWER RESPIRATORY TRACT INFECTION [None]
  - MUCOSAL INFLAMMATION [None]
  - ORAL PAIN [None]
  - RASH [None]
  - RENAL DISORDER [None]
  - SKIN DISCOLOURATION [None]
  - THROMBOCYTOPENIA [None]
  - URINE URIC ACID INCREASED [None]
  - VOMITING [None]
